FAERS Safety Report 7802045-8 (Version None)
Quarter: 2011Q4

REPORT INFORMATION
  Report Type: 
  Country: None (occurrence: None)
  Receive Date: 20111007
  Receipt Date: 20111004
  Transmission Date: 20120403
  Serious: Yes (Other)
  Sender: FDA-Public Use
  Company Number: CA-PFIZER INC-2011218389

PATIENT
  Age: 63 Year
  Sex: Female
  Weight: 130 kg

DRUGS (3)
  1. CLONAZEPAM [Concomitant]
     Indication: INSOMNIA
     Dosage: 0.05 MG, 1X/DAY AT NIGHT
     Dates: start: 20080101
  2. VARENICLINE TARTRATE [Suspect]
     Dosage: UNK
     Dates: start: 20110713, end: 20110728
  3. VARENICLINE TARTRATE [Suspect]
     Indication: SMOKING CESSATION THERAPY
     Dosage: UNK
     Dates: start: 20080101, end: 20080101

REACTIONS (5)
  - ACTIVITIES OF DAILY LIVING IMPAIRED [None]
  - DYSSTASIA [None]
  - VERTIGO [None]
  - DIZZINESS [None]
  - LYMPHOMA [None]
